FAERS Safety Report 13350936 (Version 2)
Quarter: 2017Q1

REPORT INFORMATION
  Report Type: Spontaneous
  Country: US (occurrence: US)
  Receive Date: 20170320
  Receipt Date: 20170322
  Transmission Date: 20170429
  Serious: Yes (Other)
  Sender: FDA-Public Use
  Company Number: US-PFIZER INC-2017117537

PATIENT
  Sex: Male

DRUGS (2)
  1. CYTARABINE. [Suspect]
     Active Substance: CYTARABINE
     Dosage: 100 MG, UNK
     Route: 037
     Dates: start: 20170308, end: 20170308
  2. CYTARABINE. [Suspect]
     Active Substance: CYTARABINE
     Indication: NEOPLASM MALIGNANT
     Dosage: 5 ML, UNK (100MG/5 ML)
     Route: 037

REACTIONS (5)
  - Meningitis [Unknown]
  - Headache [Recovered/Resolved]
  - Protein total abnormal [Recovered/Resolved]
  - Pyrexia [Recovered/Resolved]
  - Blood glucose abnormal [Recovered/Resolved]
